FAERS Safety Report 19706047 (Version 3)
Quarter: 2021Q3

REPORT INFORMATION
  Report Type: Spontaneous
  Country: JP (occurrence: JP)
  Receive Date: 20210816
  Receipt Date: 20210816
  Transmission Date: 20211014
  Serious: Yes (Death, Hospitalization, Other)
  Sender: FDA-Public Use
  Company Number: JP-ABBVIE-21K-087-3910241-00

PATIENT
  Age: 80 Year
  Sex: Male
  Weight: 70 kg

DRUGS (24)
  1. DIPHENHYDRAMINE. [Concomitant]
     Active Substance: DIPHENHYDRAMINE
     Indication: PRODUCT USED FOR UNKNOWN INDICATION
  2. FAMOTIDINE. [Concomitant]
     Active Substance: FAMOTIDINE
     Indication: PRODUCT USED FOR UNKNOWN INDICATION
  3. FEBUXOSTAT. [Concomitant]
     Active Substance: FEBUXOSTAT
     Indication: PRODUCT USED FOR UNKNOWN INDICATION
     Dates: start: 20210509
  4. TOCOPHEROL NICOTINATE [Concomitant]
     Active Substance: TOCOPHERYL NICOTINATE, D-.ALPHA.
     Indication: PRODUCT USED FOR UNKNOWN INDICATION
     Route: 048
  5. HEPARINOID [Concomitant]
     Active Substance: CHONDROITIN SULFATE (BOVINE)
     Indication: PRODUCT USED FOR UNKNOWN INDICATION
     Route: 003
  6. SODIUM GUALENATE HYDRATE [Concomitant]
     Active Substance: SODIUM GUALENATE MONOHYDRATE
     Indication: PRODUCT USED FOR UNKNOWN INDICATION
  7. TOCOPHEROL ACETATE [Concomitant]
     Active Substance: .ALPHA.-TOCOPHEROL ACETATE
     Indication: PRODUCT USED FOR UNKNOWN INDICATION
  8. VENCLEXTA [Suspect]
     Active Substance: VENETOCLAX
     Indication: ACUTE MYELOID LEUKAEMIA
     Route: 048
     Dates: start: 20210510, end: 20210511
  9. VENCLEXTA [Suspect]
     Active Substance: VENETOCLAX
     Route: 048
     Dates: start: 20210518, end: 20210518
  10. VIDAZA [Suspect]
     Active Substance: AZACITIDINE
     Indication: ACUTE MYELOID LEUKAEMIA
     Route: 050
     Dates: start: 20210510, end: 20210511
  11. LACTOMIN [Concomitant]
     Active Substance: DIETARY SUPPLEMENT\PROBIOTICS
     Indication: PRODUCT USED FOR UNKNOWN INDICATION
  12. VENCLEXTA [Suspect]
     Active Substance: VENETOCLAX
     Route: 048
     Dates: start: 20210517, end: 20210517
  13. ASCORBIC ACID;CALCIUM PANTOTHENATE [Concomitant]
     Indication: PRODUCT USED FOR UNKNOWN INDICATION
  14. BERIZYM [Concomitant]
     Active Substance: CELLULASE\DIASTASE\LIPASE
     Indication: PRODUCT USED FOR UNKNOWN INDICATION
  15. MECOBALAMIN [Concomitant]
     Active Substance: METHYLCOBALAMIN
     Indication: PRODUCT USED FOR UNKNOWN INDICATION
     Route: 048
  16. TOCOPHEROL ACETATE [Concomitant]
     Active Substance: .ALPHA.-TOCOPHEROL ACETATE
     Indication: PRODUCT USED FOR UNKNOWN INDICATION
  17. IRSOGLADINE MALEATE [Concomitant]
     Active Substance: IRSOGLADINE MALEATE
     Indication: PRODUCT USED FOR UNKNOWN INDICATION
  18. FEBUXOSTAT. [Concomitant]
     Active Substance: FEBUXOSTAT
     Indication: HYPERURICAEMIA
     Route: 048
     Dates: start: 20210509
  19. HEPARINOID [Concomitant]
     Active Substance: CHONDROITIN SULFATE (BOVINE)
     Indication: PRODUCT USED FOR UNKNOWN INDICATION
  20. MECOBALAMIN [Concomitant]
     Active Substance: METHYLCOBALAMIN
     Indication: PRODUCT USED FOR UNKNOWN INDICATION
  21. VENCLEXTA [Suspect]
     Active Substance: VENETOCLAX
     Route: 048
     Dates: start: 20210519, end: 20210606
  22. VIDAZA [Suspect]
     Active Substance: AZACITIDINE
     Route: 050
     Dates: start: 20210512, end: 20210517
  23. 1,4?DIMETHYL?7?ISOPROPYLAZULENE [Concomitant]
     Indication: PRODUCT USED FOR UNKNOWN INDICATION
  24. THROMBOMODULIN ALFA [Concomitant]
     Active Substance: THROMBOMODULIN ALFA
     Indication: PRODUCT USED FOR UNKNOWN INDICATION

REACTIONS (9)
  - Pneumocystis jirovecii pneumonia [Unknown]
  - Disseminated intravascular coagulation [Unknown]
  - Tumour lysis syndrome [Recovering/Resolving]
  - Fibrinogen degradation products increased [Unknown]
  - Platelet count decreased [Unknown]
  - Blood phosphorus increased [Unknown]
  - Neutrophil count decreased [Not Recovered/Not Resolved]
  - Death [Fatal]
  - Blood potassium increased [Unknown]

NARRATIVE: CASE EVENT DATE: 20210510
